FAERS Safety Report 18530586 (Version 1)
Quarter: 2020Q4

REPORT INFORMATION
  Report Type: Report from Study
  Country: US (occurrence: US)
  Receive Date: 20201121
  Receipt Date: 20201121
  Transmission Date: 20210114
  Serious: No
  Sender: FDA-Public Use
  Company Number: NVSC2020US304323

PATIENT
  Age: 76 Year
  Sex: Male

DRUGS (1)
  1. ENTRESTO [Suspect]
     Active Substance: SACUBITRIL\VALSARTAN
     Indication: PRODUCT USED FOR UNKNOWN INDICATION
     Dosage: 25 MG, BID (24.26 MG)
     Route: 048
     Dates: start: 20201013, end: 20201110

REACTIONS (3)
  - Weight increased [Unknown]
  - Hypoaesthesia [Unknown]
  - Hypotension [Unknown]

NARRATIVE: CASE EVENT DATE: 20201110
